FAERS Safety Report 5411700-9 (Version None)
Quarter: 2007Q3

REPORT INFORMATION
  Report Type: 
  Country: None (occurrence: None)
  Receive Date: 20070810
  Receipt Date: 20070731
  Transmission Date: 20080115
  Serious: Yes (Other)
  Sender: FDA-Public Use
  Company Number: US-PFIZER INC-2007065356

PATIENT
  Sex: Male
  Weight: 70.5 kg

DRUGS (1)
  1. CHANTIX [Suspect]
     Indication: SMOKING CESSATION THERAPY
     Dates: start: 20070723, end: 20070730

REACTIONS (4)
  - ABASIA [None]
  - BACK PAIN [None]
  - DIZZINESS [None]
  - MALAISE [None]
